FAERS Safety Report 16797102 (Version 2)
Quarter: 2020Q1

REPORT INFORMATION
  Report Type: Report from Study
  Country: BR (occurrence: BR)
  Receive Date: 20190911
  Receipt Date: 20200106
  Transmission Date: 20200409
  Serious: Yes (Other)
  Sender: FDA-Public Use
  Company Number: PHHY2019BR210694

PATIENT
  Sex: Male

DRUGS (2)
  1. COSENTYX [Suspect]
     Active Substance: SECUKINUMAB
     Dosage: UNK
     Route: 065
     Dates: start: 20190708
  2. COSENTYX [Suspect]
     Active Substance: SECUKINUMAB
     Indication: ANKYLOSING SPONDYLITIS
     Dosage: 2 APPLICATIONS A MONTH
     Route: 065
     Dates: start: 20180511

REACTIONS (6)
  - Arthralgia [Unknown]
  - Psoriasis [Unknown]
  - Skin lesion [Unknown]
  - Joint range of motion decreased [Unknown]
  - Insomnia [Unknown]
  - Psoriatic arthropathy [Unknown]
